FAERS Safety Report 10150929 (Version 2)
Quarter: 2014Q2

REPORT INFORMATION
  Report Type: Spontaneous
  Country: US (occurrence: US)
  Receive Date: 20140502
  Receipt Date: 20140502
  Transmission Date: 20141212
  Serious: No
  Sender: FDA-Public Use
  Company Number: US-PFIZER INC-2014088574

PATIENT
  Sex: Male

DRUGS (3)
  1. AVINZA [Suspect]
     Indication: PAIN
     Dosage: 75 MG, 2X/DAY
  2. AVINZA [Suspect]
     Dosage: 90 MG, 2X/DAY
  3. OCTAGAM ER [Concomitant]
     Dosage: 40 MG, 3X/DAY

REACTIONS (1)
  - Drug ineffective [Unknown]
